FAERS Safety Report 18350871 (Version 1)
Quarter: 2020Q4

REPORT INFORMATION
  Report Type: Spontaneous
  Country: US (occurrence: US)
  Receive Date: 20201006
  Receipt Date: 20201006
  Transmission Date: 20210114
  Serious: Yes (Other)
  Sender: FDA-Public Use
  Company Number: US-BAYER-2020-210356

PATIENT
  Age: 47 Year
  Sex: Male

DRUGS (6)
  1. ALKA-SELTZER PLUS DAY AND NIGHT MULTI-SYMPTOM COLD AND FLU FORMULA [Suspect]
     Active Substance: ACETAMINOPHEN\DEXTROMETHORPHAN HYDROBROMIDE\DOXYLAMINE SUCCINATE\PHENYLEPHRINE
     Indication: FOOD POISONING
  2. ALKA-SELTZER PLUS DAY AND NIGHT MULTI-SYMPTOM COLD AND FLU FORMULA [Suspect]
     Active Substance: ACETAMINOPHEN\DEXTROMETHORPHAN HYDROBROMIDE\DOXYLAMINE SUCCINATE\PHENYLEPHRINE
     Indication: ASTHENIA
  3. ALKA-SELTZER PLUS NIGHT COLD AND FLU FORMULA [Suspect]
     Active Substance: ACETAMINOPHEN\DEXTROMETHORPHAN HYDROBROMIDE\DOXYLAMINE SUCCINATE\PHENYLEPHRINE
     Indication: FOOD POISONING
  4. ALKA-SELTZER PLUS DAY AND NIGHT MULTI-SYMPTOM COLD AND FLU FORMULA [Suspect]
     Active Substance: ACETAMINOPHEN\DEXTROMETHORPHAN HYDROBROMIDE\DOXYLAMINE SUCCINATE\PHENYLEPHRINE
     Indication: INFLUENZA
     Dosage: ;I TAKE 2 BASED ON THE DIRECTIONS
     Route: 048
     Dates: start: 20200923, end: 20200924
  5. ALKA-SELTZER PLUS NIGHT COLD AND FLU FORMULA [Suspect]
     Active Substance: ACETAMINOPHEN\DEXTROMETHORPHAN HYDROBROMIDE\DOXYLAMINE SUCCINATE\PHENYLEPHRINE
     Indication: ASTHENIA
  6. ALKA-SELTZER PLUS NIGHT COLD AND FLU FORMULA [Suspect]
     Active Substance: ACETAMINOPHEN\DEXTROMETHORPHAN HYDROBROMIDE\DOXYLAMINE SUCCINATE\PHENYLEPHRINE
     Indication: INFLUENZA
     Dosage: I TAKE 2 BASED ON THE DIRECTIONS
     Route: 048
     Dates: start: 20200922, end: 20200923

REACTIONS (9)
  - Product use in unapproved indication [Unknown]
  - Pain [Unknown]
  - Expired product administered [None]
  - Product physical consistency issue [None]
  - Dysphagia [Unknown]
  - Product expiration date issue [None]
  - Product size issue [None]
  - Product packaging difficult to open [None]
  - Foreign body in throat [Recovered/Resolved]

NARRATIVE: CASE EVENT DATE: 20200922
